FAERS Safety Report 6686430-6 (Version None)
Quarter: 2010Q2

REPORT INFORMATION
  Report Type: 
  Country: None (occurrence: None)
  Receive Date: 20100419
  Receipt Date: 20100409
  Transmission Date: 20101027
  Serious: Yes (Death)
  Sender: FDA-Public Use
  Company Number: B0599711B

PATIENT

DRUGS (5)
  1. ARIXTRA [Suspect]
     Indication: CEREBRAL VENOUS THROMBOSIS
     Dosage: 7.5MG PER DAY
     Dates: start: 20090801
  2. LOVENOX [Concomitant]
     Indication: CEREBRAL VENOUS THROMBOSIS
     Dates: start: 20090101, end: 20090101
  3. INNOHEP [Concomitant]
     Indication: CEREBRAL VENOUS THROMBOSIS
     Dates: start: 20090101, end: 20090101
  4. ALDOMET [Concomitant]
     Dates: start: 20100302
  5. LOXEN [Concomitant]
     Dates: start: 20100302

REACTIONS (3)
  - DRUG EXPOSURE DURING PREGNANCY [None]
  - FOETAL DISTRESS SYNDROME [None]
  - INTRA-UTERINE DEATH [None]
